FAERS Safety Report 16436783 (Version 1)
Quarter: 2019Q2

REPORT INFORMATION
  Report Type: Spontaneous
  Country: FR (occurrence: FR)
  Receive Date: 20190614
  Receipt Date: 20190614
  Transmission Date: 20190711
  Serious: Yes (Other)
  Sender: FDA-Public Use
  Company Number: FR-ELI_LILLY_AND_COMPANY-FR201906005579

PATIENT
  Sex: Female

DRUGS (9)
  1. DULOXETINE. [Concomitant]
     Active Substance: DULOXETINE
  2. ABASAGLAR [Suspect]
     Active Substance: INSULIN GLARGINE
     Indication: DIABETES MELLITUS
     Dosage: UNK
     Route: 065
     Dates: start: 2017
  3. HUMALOG [Suspect]
     Active Substance: INSULIN LISPRO
     Indication: PRODUCT USED FOR UNKNOWN INDICATION
     Dosage: UNK, UNKNOWN
     Route: 065
  4. TRIMEBUTINE [Concomitant]
     Active Substance: TRIMEBUTINE
  5. GABAPENTINE [Concomitant]
     Active Substance: GABAPENTIN
  6. DOMPERIDONE [Concomitant]
     Active Substance: DOMPERIDONE
  7. TRAMADOL. [Concomitant]
     Active Substance: TRAMADOL
  8. XARELTO [Concomitant]
     Active Substance: RIVAROXABAN
  9. PROPRANOLOL [Concomitant]
     Active Substance: PROPRANOLOL HYDROCHLORIDE

REACTIONS (3)
  - Varices oesophageal [Unknown]
  - Tracheitis [Not Recovered/Not Resolved]
  - Dysphonia [Unknown]
